FAERS Safety Report 20604651 (Version 6)
Quarter: 2025Q4

REPORT INFORMATION
  Report Type: Report from Study
  Country: KR (occurrence: KR)
  Receive Date: 20220316
  Receipt Date: 20251202
  Transmission Date: 20260117
  Serious: Yes (Death, Life-Threatening, Hospitalization, Other)
  Sender: ABBVIE
  Company Number: KR-ABBVIE-22K-090-4318332-00

PATIENT
  Age: 75 Year
  Sex: Male
  Weight: 86 kg

DRUGS (51)
  1. VENETOCLAX [Suspect]
     Active Substance: VENETOCLAX
     Indication: Acute myeloid leukaemia
     Dosage: FILM-COATED
     Route: 048
     Dates: start: 20211124, end: 20211124
  2. VENETOCLAX [Suspect]
     Active Substance: VENETOCLAX
     Indication: Acute myeloid leukaemia
     Dosage: FILM-COATED
     Route: 048
     Dates: start: 20211125, end: 20211125
  3. VENETOCLAX [Suspect]
     Active Substance: VENETOCLAX
     Indication: Acute myeloid leukaemia
     Dosage: FILM-COATED
     Route: 048
     Dates: start: 20211126, end: 20211126
  4. VENETOCLAX [Suspect]
     Active Substance: VENETOCLAX
     Indication: Acute myeloid leukaemia
     Dosage: FILM-COATED
     Route: 048
     Dates: start: 20211128, end: 20220302
  5. MAGNESIUM HYDROXIDE [Concomitant]
     Active Substance: MAGNESIUM HYDROXIDE
     Indication: Constipation
     Dosage: TIME INTERVAL: 0.33333333 DAYS
     Route: 048
     Dates: start: 20211122, end: 20211129
  6. LASIX [Concomitant]
     Active Substance: FUROSEMIDE
     Indication: Blood creatinine increased
     Route: 042
     Dates: start: 20220313, end: 20220313
  7. LASIX [Concomitant]
     Active Substance: FUROSEMIDE
     Indication: Blood creatinine increased
     Route: 042
     Dates: start: 20220311, end: 20220312
  8. Godex [Concomitant]
     Indication: Gamma-glutamyltransferase increased
     Dosage: TIME INTERVAL: 0.33333333 DAYS
     Route: 048
     Dates: start: 20220204, end: 20220214
  9. METOCLOPRAMIDE HYDROCHLORIDE [Concomitant]
     Active Substance: METOCLOPRAMIDE HYDROCHLORIDE
     Indication: Constipation
     Route: 042
     Dates: start: 20211126, end: 20211130
  10. Hydrine [Concomitant]
     Indication: Acute myeloid leukaemia
     Route: 048
     Dates: start: 20211122, end: 20211125
  11. OLMESARTAN MEDOXOMIL [Concomitant]
     Active Substance: OLMESARTAN MEDOXOMIL
     Indication: Hypertension
     Route: 048
     Dates: start: 20211122, end: 20220208
  12. NORVASC [Concomitant]
     Active Substance: AMLODIPINE BESYLATE
     Indication: Hypertension
     Route: 048
     Dates: start: 20211122, end: 20220302
  13. NOXAFIL [Concomitant]
     Active Substance: POSACONAZOLE
     Indication: Prophylaxis
     Dosage: GASTRO RESISTANT
     Route: 048
     Dates: start: 20211124, end: 20211214
  14. HARNAL [Concomitant]
     Active Substance: TAMSULOSIN HYDROCHLORIDE
     Indication: Benign prostatic hyperplasia
     Route: 048
     Dates: start: 20211215, end: 20220209
  15. LEVOFLOXACIN [Concomitant]
     Active Substance: LEVOFLOXACIN
     Indication: Prophylaxis
     Route: 048
     Dates: start: 20211202, end: 20220302
  16. ACETYLCYSTEINE [Concomitant]
     Active Substance: ACETYLCYSTEINE
     Indication: Prophylaxis
     Dosage: 100MG/ML 3ML/A
     Route: 042
     Dates: start: 20220310, end: 20220314
  17. PRUCALOPRIDE SUCCINATE [Concomitant]
     Active Substance: PRUCALOPRIDE SUCCINATE
     Indication: Constipation
     Route: 048
     Dates: start: 20211124, end: 20220302
  18. VITAMINS [Concomitant]
     Active Substance: VITAMINS
     Indication: Prophylaxis
     Dosage: 1 VIAL
     Route: 042
     Dates: start: 20220310, end: 20220313
  19. FASTURTEC [Concomitant]
     Active Substance: RASBURICASE
     Indication: Prophylaxis
     Dosage: INJECTION
     Route: 042
     Dates: start: 20220207, end: 20220207
  20. SINGULAIR [Concomitant]
     Active Substance: MONTELUKAST SODIUM
     Indication: Asthma
     Route: 048
     Dates: start: 20211129, end: 20220302
  21. Ultracet er semi [Concomitant]
     Indication: Back pain
     Route: 048
     Dates: start: 20211121, end: 20220214
  22. VANCOMYCIN HYDROCHLORIDE [Concomitant]
     Active Substance: VANCOMYCIN HYDROCHLORIDE
     Indication: Pyrexia
     Route: 042
     Dates: start: 20220207, end: 20220209
  23. ALLOPURINOL [Concomitant]
     Active Substance: ALLOPURINOL
     Indication: Prophylaxis
     Route: 048
     Dates: start: 20211122, end: 20211210
  24. ALLOPURINOL [Concomitant]
     Active Substance: ALLOPURINOL
     Indication: Prophylaxis
     Route: 048
     Dates: start: 20220310, end: 20220313
  25. ALLOPURINOL [Concomitant]
     Active Substance: ALLOPURINOL
     Indication: Prophylaxis
     Route: 048
     Dates: start: 20220203, end: 20220208
  26. SULFAMETHOXAZOLE\TRIMETHOPRIM [Concomitant]
     Active Substance: SULFAMETHOXAZOLE\TRIMETHOPRIM
     Indication: Prophylaxis
     Route: 048
     Dates: start: 20211124, end: 20220302
  27. Omapone peri [Concomitant]
     Indication: Decreased appetite
     Route: 042
     Dates: start: 20211214, end: 20211217
  28. Hepa merz [Concomitant]
     Indication: Liver function test increased
     Dosage: INJECTION/500MG/5ML
     Route: 042
     Dates: start: 20211125, end: 20211202
  29. Hepa merz [Concomitant]
     Indication: Liver function test increased
     Dosage: INJECTION
     Route: 042
     Dates: start: 20220311, end: 20220313
  30. PROPACETAMOL HYDROCHLORIDE [Concomitant]
     Active Substance: PROPACETAMOL HYDROCHLORIDE
     Indication: Pyrexia
     Dosage: INJECTION
     Route: 042
     Dates: start: 20220310, end: 20220315
  31. PROPACETAMOL HYDROCHLORIDE [Concomitant]
     Active Substance: PROPACETAMOL HYDROCHLORIDE
     Indication: Pyrexia
     Dosage: INJECTION
     Route: 042
     Dates: start: 20220203, end: 20220206
  32. PROPACETAMOL HYDROCHLORIDE [Concomitant]
     Active Substance: PROPACETAMOL HYDROCHLORIDE
     Indication: Pyrexia
     Dosage: INJECTION
     Route: 042
     Dates: start: 20211121, end: 20211129
  33. Vizadakin [Concomitant]
     Indication: Acute myeloid leukaemia
     Route: 042
     Dates: start: 20211124, end: 20211130
  34. Vizadakin [Concomitant]
     Indication: Acute myeloid leukaemia
     Route: 042
     Dates: start: 20220203, end: 20220209
  35. FLUTICASONE FUROATE\VILANTEROL TRIFENATATE [Concomitant]
     Active Substance: FLUTICASONE FUROATE\VILANTEROL TRIFENATATE
     Indication: Asthma
     Dosage: TIME INTERVAL: AS NECESSARY
     Route: 055
     Dates: start: 20211126, end: 20220302
  36. RAMOSETRON HYDROCHLORIDE [Concomitant]
     Active Substance: RAMOSETRON HYDROCHLORIDE
     Indication: Prophylaxis
     Dosage: AMP
     Route: 048
     Dates: start: 20211124, end: 20220209
  37. Dulcolax [Concomitant]
     Indication: Constipation
     Route: 054
     Dates: start: 20211125, end: 20211129
  38. Tylicol [Concomitant]
     Indication: Product used for unknown indication
     Route: 042
     Dates: start: 20220310, end: 20220315
  39. MAXIPIME [Concomitant]
     Active Substance: CEFEPIME HYDROCHLORIDE
     Indication: Pyrexia
     Dosage: TIME INTERVAL: 0.33333333 DAYS
     Route: 042
     Dates: start: 20220310, end: 20220314
  40. MAXIPIME [Concomitant]
     Active Substance: CEFEPIME HYDROCHLORIDE
     Indication: Pyrexia
     Dosage: TIME INTERVAL: 0.33333333 DAYS
     Route: 042
     Dates: start: 20220204, end: 20220209
  41. MAXIPIME [Concomitant]
     Active Substance: CEFEPIME HYDROCHLORIDE
     Indication: Pyrexia
     Dosage: TIME INTERVAL: 0.33333333 DAYS
     Route: 042
     Dates: start: 20211120, end: 20211201
  42. DIFLUCAN [Concomitant]
     Active Substance: FLUCONAZOLE
     Indication: Prophylaxis
     Route: 048
     Dates: start: 20211222, end: 20220302
  43. NALOXONE HYDROCHLORIDE\OXYCODONE HYDROCHLORIDE [Concomitant]
     Active Substance: NALOXONE HYDROCHLORIDE\OXYCODONE HYDROCHLORIDE
     Indication: Pain in extremity
     Dosage: PR 5/2.5MG
     Route: 048
     Dates: start: 20220112, end: 20220209
  44. Agio [Concomitant]
     Indication: Constipation
     Dosage: TIME INTERVAL: AS NECESSARY
     Route: 048
     Dates: start: 20211128, end: 20211225
  45. Furtman [Concomitant]
     Indication: Prophylaxis
     Route: 042
     Dates: start: 20220310, end: 20220313
  46. Vacrax [Concomitant]
     Indication: Prophylaxis
     Route: 048
     Dates: start: 20211124, end: 20220302
  47. LACTULOSE [Concomitant]
     Active Substance: LACTULOSE
     Indication: Constipation
     Route: 048
     Dates: start: 20220119, end: 20220206
  48. Comp ursa [Concomitant]
     Indication: Gamma-glutamyltransferase increased
     Dosage: TIME INTERVAL: 0.33333333 DAYS
     Route: 048
     Dates: start: 20220204, end: 20220214
  49. FOLIC ACID [Concomitant]
     Active Substance: FOLIC ACID
     Indication: Anaemia
     Route: 048
     Dates: start: 20220104, end: 20220118
  50. POTASSIUM [Concomitant]
     Active Substance: POTASSIUM
     Indication: Blood potassium decreased
     Dosage: 1BOTTLE 20MEQ/NS100 ML
     Route: 042
     Dates: start: 20211124, end: 20211127
  51. YUHAN 3 CHAMBER FOMS PERI [Concomitant]
     Indication: Parenteral nutrition
     Route: 042

REACTIONS (1)
  - Cerebral infarction [Fatal]

NARRATIVE: CASE EVENT DATE: 20220310
